FAERS Safety Report 15587673 (Version 2)
Quarter: 2018Q4

REPORT INFORMATION
  Report Type: Report from Study
  Country: US (occurrence: US)
  Receive Date: 20181105
  Receipt Date: 20181219
  Transmission Date: 20190205
  Serious: Yes (Other)
  Sender: FDA-Public Use
  Company Number: PHEH2018US046126

PATIENT
  Sex: Female

DRUGS (1)
  1. COSENTYX [Suspect]
     Active Substance: SECUKINUMAB
     Indication: PSORIASIS
     Dosage: 300 MG, QMO
     Route: 058

REACTIONS (5)
  - Abortion spontaneous [Unknown]
  - Maternal exposure timing unspecified [Unknown]
  - Ear infection [Unknown]
  - Psoriasis [Recovered/Resolved]
  - Drug ineffective [Not Recovered/Not Resolved]
